FAERS Safety Report 15493499 (Version 1)
Quarter: 2018Q4

REPORT INFORMATION
  Report Type: Other
  Country: IT (occurrence: IT)
  Receive Date: 20181012
  Receipt Date: 20181012
  Transmission Date: 20190205
  Serious: Yes (Hospitalization, Other)
  Sender: FDA-Public Use
  Company Number: IT-MACLEODS PHARMACEUTICALS US LTD-MAC2018017409

PATIENT

DRUGS (7)
  1. PANTOPRAZOLE [Suspect]
     Active Substance: PANTOPRAZOLE
     Indication: DRUG ABUSE
     Dosage: 417.5 MILLIGRAM, TOTAL
     Route: 048
     Dates: start: 20180708, end: 20180708
  2. VENLAFAXINE [Suspect]
     Active Substance: VENLAFAXINE HYDROCHLORIDE
     Indication: DRUG ABUSE
     Dosage: 8 DOSAGE FORM, TOTAL, PROLONGED-RELEASE CAPSULE
     Route: 048
     Dates: start: 20180708, end: 20180708
  3. BROMAZEPAM [Suspect]
     Active Substance: BROMAZEPAM
     Indication: DRUG ABUSE
     Dosage: 20 MILLILITER, TOTAL
     Route: 048
     Dates: start: 20180708, end: 20180708
  4. AMITRIPTYLINE HYDROCHLORIDE. [Suspect]
     Active Substance: AMITRIPTYLINE HYDROCHLORIDE
     Indication: DRUG ABUSE
     Dosage: 24 DOSAGE FORM, TOTAL
     Route: 048
     Dates: start: 20180708, end: 20180708
  5. ASPIRIN. [Suspect]
     Active Substance: ASPIRIN
     Indication: DRUG ABUSE
     Dosage: 2900 MILLIGRAM, TOTAL
     Route: 048
     Dates: start: 20180708, end: 20180708
  6. RAMIPRIL. [Suspect]
     Active Substance: RAMIPRIL
     Indication: DRUG ABUSE
     Dosage: 17.5 MILLIGRAM, TOTAL
     Route: 048
     Dates: start: 20180708
  7. TRIAZOLAM. [Suspect]
     Active Substance: TRIAZOLAM
     Indication: DRUG ABUSE
     Dosage: 30 DOSAGE FORM, TOTAL
     Route: 048
     Dates: start: 20180708, end: 20180708

REACTIONS (3)
  - Sopor [Recovering/Resolving]
  - Confusional state [Recovering/Resolving]
  - Drug abuse [Unknown]

NARRATIVE: CASE EVENT DATE: 20180708
